FAERS Safety Report 18782181 (Version 1)
Quarter: 2021Q1

REPORT INFORMATION
  Report Type: Spontaneous
  Country: US (occurrence: US)
  Receive Date: 20210125
  Receipt Date: 20210125
  Transmission Date: 20210419
  Serious: Yes (Death)
  Sender: FDA-Public Use
  Company Number: None

PATIENT
  Age: 64 Year
  Sex: Male

DRUGS (12)
  1. ENTRESTO 24?26MG [Concomitant]
     Dates: start: 20201204
  2. CLOPIDOGREL [Concomitant]
     Active Substance: CLOPIDOGREL BISULFATE
     Dates: start: 20201204
  3. METOPROLOL SUCCINATE 25MG [Concomitant]
     Active Substance: METOPROLOL SUCCINATE
     Dates: start: 20201204
  4. GABAPENTIN 300MG [Concomitant]
     Active Substance: GABAPENTIN
     Dates: start: 20201204
  5. PANTOPRAZOLE 40MG [Concomitant]
     Active Substance: PANTOPRAZOLE SODIUM
     Dates: start: 20201204
  6. ATORVASTATIN 40MG [Concomitant]
     Active Substance: ATORVASTATIN
     Dates: start: 20201204
  7. ASPIRIN 81MG [Concomitant]
     Active Substance: ASPIRIN
     Dates: start: 20201204
  8. DIGOXIN 0.125MG [Concomitant]
     Dates: start: 20201204
  9. ELIQUIS [Concomitant]
     Active Substance: APIXABAN
     Dates: start: 20201204
  10. AMIODARONE 200MG [Concomitant]
     Active Substance: AMIODARONE
     Dates: start: 20201204
  11. REPATHA [Suspect]
     Active Substance: EVOLOCUMAB
     Dosage: ?          OTHER FREQUENCY:EVERY 2 WEEKS;?
     Route: 058
     Dates: start: 20201204
  12. FUROSEMIDE 20MG [Concomitant]
     Active Substance: FUROSEMIDE
     Dates: start: 20201204

REACTIONS (1)
  - Death [None]

NARRATIVE: CASE EVENT DATE: 20210125
